FAERS Safety Report 7465633-7 (Version None)
Quarter: 2011Q2

REPORT INFORMATION
  Report Type: 
  Country: None (occurrence: None)
  Receive Date: 20110509
  Receipt Date: 20110503
  Transmission Date: 20111010
  Serious: Yes (Hospitalization)
  Sender: FDA-Public Use
  Company Number: A0806189A

PATIENT
  Age: 39 Year
  Sex: Male

DRUGS (43)
  1. ADVAIR DISKUS 100/50 [Concomitant]
  2. ALBUTEROL [Concomitant]
  3. ESOMEPRAZOLE [Concomitant]
  4. OLANZAPINE [Concomitant]
  5. REGULAR INSULIN [Concomitant]
  6. NPH INSULIN [Concomitant]
  7. SEVELAMER [Concomitant]
  8. CLONIDINE [Concomitant]
  9. HYDROCHLOROTHIAZIDE [Concomitant]
  10. ASPIRIN [Concomitant]
  11. KEPPRA [Concomitant]
  12. GLUCOPHAGE [Concomitant]
  13. MORPHINE [Concomitant]
  14. PHENYTOIN [Concomitant]
  15. ALBUTEROL [Concomitant]
  16. IMITREX [Concomitant]
  17. DILANTIN [Concomitant]
  18. LISINOPRIL [Concomitant]
  19. FLUOXETINE [Concomitant]
  20. WARFARIN [Concomitant]
  21. MONTELUKAST SODIUM [Concomitant]
  22. METOPROLOL TARTRATE [Concomitant]
  23. PROMETHAZINE [Concomitant]
  24. RISPERIDONE [Concomitant]
  25. ENOXAPARIN [Concomitant]
  26. NITROGLYCERIN [Concomitant]
  27. VIAGRA [Concomitant]
  28. DIAZEPAM [Concomitant]
  29. SIMVASTATIN [Concomitant]
  30. CARISOPRODOL [Concomitant]
  31. ISOSORBIDE DINITRATE [Concomitant]
  32. GLYBURIDE [Concomitant]
  33. PROTONIX [Concomitant]
  34. SINGULAIR [Concomitant]
  35. LEVALBUTEROL HCL [Concomitant]
  36. METFORMIN [Concomitant]
  37. MS CONTIN [Concomitant]
  38. AVANDIA [Suspect]
     Indication: DIABETES MELLITUS
     Route: 048
     Dates: end: 20090101
  39. QUETIAPINE [Concomitant]
  40. LEVETIRACETAM [Concomitant]
  41. LORTAB [Concomitant]
  42. VERAPAMIL [Concomitant]
  43. CATAPRES [Concomitant]

REACTIONS (8)
  - CARDIAC FAILURE CONGESTIVE [None]
  - HYPERTENSION [None]
  - MACULAR OEDEMA [None]
  - CEREBROVASCULAR ACCIDENT [None]
  - MYOCARDIAL INFARCTION [None]
  - ANAEMIA [None]
  - CONVULSION [None]
  - BACK PAIN [None]
